FAERS Safety Report 7141779-8 (Version None)
Quarter: 2010Q4

REPORT INFORMATION
  Report Type: 
  Country: None (occurrence: None)
  Receive Date: 20101112
  Receipt Date: 20100827
  Transmission Date: 20110411
  Serious: No
  Sender: FDA-Public Use
  Company Number: 1000015987

PATIENT
  Age: 45 Year
  Sex: Female

DRUGS (8)
  1. SAVELLA [Suspect]
     Indication: FIBROMYALGIA
     Dosage: SEE IMAGE
     Route: 048
     Dates: start: 20100210, end: 20100210
  2. SAVELLA [Suspect]
     Indication: FIBROMYALGIA
     Dosage: SEE IMAGE
     Route: 048
     Dates: start: 20100211, end: 20100212
  3. SAVELLA [Suspect]
     Indication: FIBROMYALGIA
     Dosage: SEE IMAGE
     Route: 048
     Dates: start: 20100213, end: 20100216
  4. SAVELLA [Suspect]
     Indication: FIBROMYALGIA
     Dosage: SEE IMAGE
     Route: 048
     Dates: start: 20100217
  5. DICLOFENAC [Concomitant]
  6. METFORMIN [Concomitant]
  7. PRAVASTATIN [Concomitant]
  8. GUAIFENESIN [Concomitant]

REACTIONS (1)
  - HEAT EXHAUSTION [None]
